FAERS Safety Report 18985798 (Version 3)
Quarter: 2021Q1

REPORT INFORMATION
  Report Type: Spontaneous
  Country: US (occurrence: US)
  Receive Date: 20210309
  Receipt Date: 20210322
  Transmission Date: 20210420
  Serious: Yes (Other)
  Sender: FDA-Public Use
  Company Number: US-GLAXOSMITHKLINE-US2021AMR058139

PATIENT
  Age: 57 Year
  Sex: Female

DRUGS (2)
  1. ALBUTEROL. [Concomitant]
     Active Substance: ALBUTEROL
     Indication: PRODUCT USED FOR UNKNOWN INDICATION
     Dosage: UNK
  2. NUCALA [Suspect]
     Active Substance: MEPOLIZUMAB
     Indication: ASTHMA
     Dosage: 100 MG, VA
     Dates: start: 20210212

REACTIONS (7)
  - Chest discomfort [Not Recovered/Not Resolved]
  - Fatigue [Not Recovered/Not Resolved]
  - Pain in jaw [Not Recovered/Not Resolved]
  - Headache [Not Recovered/Not Resolved]
  - Dyspnoea [Not Recovered/Not Resolved]
  - Swelling face [Not Recovered/Not Resolved]
  - Ocular sarcoidosis [Unknown]

NARRATIVE: CASE EVENT DATE: 202102
